FAERS Safety Report 16693423 (Version 3)
Quarter: 2019Q3

REPORT INFORMATION
  Report Type: Spontaneous
  Country: ES (occurrence: ES)
  Receive Date: 20190812
  Receipt Date: 20190926
  Transmission Date: 20191004
  Serious: Yes (Other)
  Sender: FDA-Public Use
  Company Number: ES-TEVA-2019-ES-1090850

PATIENT
  Age: 9 Month
  Sex: Male
  Weight: 9.6 kg

DRUGS (3)
  1. OMEPRAZOL (2141A) [Suspect]
     Active Substance: OMEPRAZOLE
     Indication: GASTROOESOPHAGEAL REFLUX DISEASE
     Dosage: 8 MG / 12 HOURS
     Dates: start: 20190314, end: 20190410
  2. OMEPRAZOL (2141A) [Suspect]
     Active Substance: OMEPRAZOLE
     Dosage: 4 MG / 12 HOURS
     Route: 048
     Dates: start: 20181217, end: 20190314
  3. MINOXIDIL (782A) [Suspect]
     Active Substance: MINOXIDIL
     Dates: start: 20181217

REACTIONS (2)
  - Hypertrichosis [Recovering/Resolving]
  - Product formulation issue [Recovered/Resolved]

NARRATIVE: CASE EVENT DATE: 2019
